FAERS Safety Report 4651000-8 (Version None)
Quarter: 2005Q2

REPORT INFORMATION
  Report Type: 
  Country: None (occurrence: None)
  Receive Date: 20050503
  Receipt Date: 20050421
  Transmission Date: 20051028
  Serious: Yes (Other)
  Sender: FDA-Public Use
  Company Number: GB-BRISTOL-MYERS SQUIBB COMPANY-12942223

PATIENT
  Age: 32 Year
  Sex: Female
  Weight: 57 kg

DRUGS (4)
  1. ABILIFY [Suspect]
     Indication: SCHIZOPHRENIA
     Route: 048
     Dates: start: 20050201
  2. CITALOPRAM HYDROBROMIDE [Interacting]
     Indication: DEPRESSION
     Route: 048
     Dates: start: 20050317, end: 20050408
  3. MIRTAZAPINE [Concomitant]
  4. MULTI-VITAMINS [Concomitant]

REACTIONS (3)
  - AKATHISIA [None]
  - DRUG INTERACTION [None]
  - MUSCLE TWITCHING [None]
